FAERS Safety Report 24320404 (Version 1)
Quarter: 2024Q3

REPORT INFORMATION
  Report Type: Spontaneous
  Country: US (occurrence: US)
  Receive Date: 20240915
  Receipt Date: 20240915
  Transmission Date: 20241017
  Serious: No
  Sender: ROCHE
  Company Number: US-ROCHE-10000079105

PATIENT
  Age: 17 Year
  Sex: Male

DRUGS (1)
  1. COTELLIC [Suspect]
     Active Substance: COBIMETINIB
     Indication: Histiocytosis
     Dosage: 21 DAY
     Route: 048

REACTIONS (2)
  - Off label use [Unknown]
  - No adverse event [Unknown]
